FAERS Safety Report 21672301 (Version 2)
Quarter: 2025Q2

REPORT INFORMATION
  Report Type: Spontaneous
  Country: BE (occurrence: BE)
  Receive Date: 20221202
  Receipt Date: 20250607
  Transmission Date: 20250716
  Serious: Yes (Other)
  Sender: AUROBINDO
  Company Number: DE-EMA-DD-20221117-7180173-081218

PATIENT
  Age: 72 Year
  Sex: Male

DRUGS (5)
  1. AMOXICILLIN\CLAVULANIC ACID [Suspect]
     Active Substance: AMOXICILLIN\CLAVULANIC ACID
     Indication: Chronic obstructive pulmonary disease
     Dosage: 6 GRAM, ONCE A DAY (2 G, 3 TIMES A/DAY)
     Route: 048
  2. AMIKACIN [Suspect]
     Active Substance: AMIKACIN
     Indication: Chronic obstructive pulmonary disease
     Dosage: 1 GRAM, ONCE A DAY
     Route: 042
  3. ORNIDAZOLE [Suspect]
     Active Substance: ORNIDAZOLE
     Indication: Chronic obstructive pulmonary disease
     Dosage: 1 GRAM, ONCE A DAY
     Route: 065
  4. METHYLPREDNISOLONE [Concomitant]
     Active Substance: METHYLPREDNISOLONE
     Indication: Chronic obstructive pulmonary disease
     Route: 065
  5. HYDROCORTISONE [Concomitant]
     Active Substance: HYDROCORTISONE
     Indication: Chronic obstructive pulmonary disease
     Dosage: 50 MILLIGRAM, 3 TIMES A DAY
     Route: 065

REACTIONS (1)
  - Hypokalaemia [Recovered/Resolved]

NARRATIVE: CASE EVENT DATE: 19951001
